FAERS Safety Report 19131126 (Version 2)
Quarter: 2021Q2

REPORT INFORMATION
  Report Type: Report from Study
  Country: None (occurrence: CA)
  Receive Date: 20210414
  Receipt Date: 20210517
  Transmission Date: 20210717
  Serious: Yes (Other)
  Sender: FDA-Public Use
  Company Number: CA-ABBVIE-21K-028-3854504-00

PATIENT
  Sex: Male

DRUGS (1)
  1. HUMIRA [Suspect]
     Active Substance: ADALIMUMAB
     Indication: CROHN^S DISEASE
     Route: 058
     Dates: start: 20110923

REACTIONS (3)
  - Large intestinal stenosis [Not Recovered/Not Resolved]
  - Large intestinal obstruction [Recovered/Resolved with Sequelae]
  - Crohn^s disease [Unknown]
